FAERS Safety Report 14574225 (Version 4)
Quarter: 2018Q3

REPORT INFORMATION
  Report Type: Spontaneous
  Country: US (occurrence: US)
  Receive Date: 20180226
  Receipt Date: 20180727
  Transmission Date: 20181010
  Serious: Yes (Life-Threatening, Hospitalization)
  Sender: FDA-Public Use
  Company Number: US-ACTELION-A-US2018-168085

PATIENT
  Age: 65 Year
  Sex: Female

DRUGS (2)
  1. OPSUMIT [Suspect]
     Active Substance: MACITENTAN
     Indication: PULMONARY ARTERIAL HYPERTENSION
     Dosage: 10 MG, QD
     Route: 048
     Dates: start: 20160226
  2. UPTRAVI [Suspect]
     Active Substance: SELEXIPAG
     Indication: PULMONARY ARTERIAL HYPERTENSION
     Dosage: 600 MCG, BID
     Route: 048
     Dates: start: 20170322

REACTIONS (9)
  - Atrial fibrillation [Unknown]
  - Oxygen consumption increased [Unknown]
  - Influenza [Unknown]
  - Sinusitis [Unknown]
  - Respiratory disorder [Not Recovered/Not Resolved]
  - Dyspnoea [Unknown]
  - Cerebrovascular accident [Unknown]
  - Transient ischaemic attack [Unknown]
  - Respiratory syncytial virus infection [Not Recovered/Not Resolved]

NARRATIVE: CASE EVENT DATE: 201712
